FAERS Safety Report 7429801-2 (Version None)
Quarter: 2011Q2

REPORT INFORMATION
  Report Type: 
  Country: None (occurrence: None)
  Receive Date: 20110421
  Receipt Date: 20110412
  Transmission Date: 20111010
  Serious: Yes (Hospitalization, Disabling)
  Sender: FDA-Public Use
  Company Number: US-MERCK-1101USA01771

PATIENT
  Age: 59 Year
  Sex: Female
  Weight: 73 kg

DRUGS (6)
  1. VITAMIN D (UNSPECIFIED) [Concomitant]
     Route: 065
     Dates: start: 19990101
  2. FOSAMAX [Suspect]
     Route: 065
  3. FOSAMAX [Suspect]
     Indication: OSTEOPENIA
     Route: 048
     Dates: start: 20041101, end: 20081101
  4. CALCIUM (UNSPECIFIED) [Concomitant]
     Route: 065
     Dates: start: 19990101
  5. VITAMINS (UNSPECIFIED) [Concomitant]
     Route: 065
  6. ALENDRONATE SODIUM [Suspect]
     Route: 065

REACTIONS (17)
  - SENILE OSTEOPOROSIS [None]
  - CARTILAGE INJURY [None]
  - LOW TURNOVER OSTEOPATHY [None]
  - OSTEOARTHRITIS [None]
  - HYPERCHOLESTEROLAEMIA [None]
  - EPICONDYLITIS [None]
  - FEMUR FRACTURE [None]
  - BURNS SECOND DEGREE [None]
  - PAIN IN EXTREMITY [None]
  - JOINT CREPITATION [None]
  - ARTHRALGIA [None]
  - BRONCHITIS [None]
  - FALL [None]
  - PNEUMONIA [None]
  - OSTEOPOROSIS [None]
  - FOOT FRACTURE [None]
  - HYPERLIPIDAEMIA [None]
